FAERS Safety Report 11331724 (Version 6)
Quarter: 2017Q3

REPORT INFORMATION
  Report Type: Spontaneous
  Country: US (occurrence: US)
  Receive Date: 20150803
  Receipt Date: 20170907
  Transmission Date: 20171127
  Serious: Yes (Other)
  Sender: FDA-Public Use
  Company Number: US-TEVA-582517USA

PATIENT
  Age: 64 Year
  Sex: Female
  Weight: 84 kg

DRUGS (16)
  1. NORPACE [Suspect]
     Active Substance: DISOPYRAMIDE PHOSPHATE
     Indication: ATRIAL FIBRILLATION
     Dosage: 400 MILLIGRAM DAILY;
     Route: 065
     Dates: start: 20150423, end: 20150523
  2. NORPACE CR [Suspect]
     Active Substance: DISOPYRAMIDE PHOSPHATE
  3. ASPIRIN. [Concomitant]
     Active Substance: ASPIRIN
     Indication: CEREBROVASCULAR ACCIDENT PROPHYLAXIS
     Dates: start: 2007, end: 201506
  4. NEXIUM [Concomitant]
     Active Substance: ESOMEPRAZOLE MAGNESIUM
     Indication: GASTROOESOPHAGEAL REFLUX DISEASE
     Dates: start: 2002
  5. COUMADIN [Concomitant]
     Active Substance: WARFARIN SODIUM
     Indication: CEREBROVASCULAR ACCIDENT PROPHYLAXIS
  6. DILTIAZEM. [Suspect]
     Active Substance: DILTIAZEM
     Indication: ATRIAL FIBRILLATION
     Dosage: 120 MILLIGRAM DAILY;
     Route: 065
     Dates: start: 201707, end: 201707
  7. COUMADIN [Concomitant]
     Active Substance: WARFARIN SODIUM
     Indication: ATRIAL FIBRILLATION
     Dosage: 3 MILLIGRAM DAILY;
     Route: 048
     Dates: start: 201506
  8. NORPACE CR [Suspect]
     Active Substance: DISOPYRAMIDE PHOSPHATE
     Route: 065
     Dates: start: 201512
  9. LIPITOR [Concomitant]
     Active Substance: ATORVASTATIN CALCIUM
     Indication: BLOOD CHOLESTEROL INCREASED
     Dosage: 20 MILLIGRAM DAILY;
     Route: 048
     Dates: start: 2009
  10. ATORVASTATIN CALCIUM (MYLAN) [Concomitant]
     Indication: BLOOD CHOLESTEROL INCREASED
     Dosage: 20 MILLIGRAM DAILY;
  11. WARFARIN [Concomitant]
     Active Substance: WARFARIN
     Dosage: 1.7143 MILLIGRAM DAILY;
  12. DISOPYRAMIDE [Suspect]
     Active Substance: DISOPYRAMIDE
     Indication: ATRIAL FIBRILLATION
     Dosage: 400 MILLIGRAM DAILY;
     Route: 048
     Dates: start: 20150312, end: 20151204
  13. NEXIUM 24HR-OVER-THE-COUNTER [Concomitant]
     Dosage: 45 MILLIGRAM DAILY;
     Route: 048
     Dates: start: 2002, end: 2015
  14. WARFARIN [Concomitant]
     Active Substance: WARFARIN
     Dosage: .6429 MILLIGRAM DAILY;
  15. NORPACE CR [Suspect]
     Active Substance: DISOPYRAMIDE PHOSPHATE
     Route: 065
     Dates: start: 2007, end: 20150524
  16. DISOPYRAMIDE [Suspect]
     Active Substance: DISOPYRAMIDE
     Dosage: 400 MILLIGRAM DAILY;
     Route: 048
     Dates: start: 201707

REACTIONS (15)
  - Gastrooesophageal reflux disease [Unknown]
  - Fatigue [Not Recovered/Not Resolved]
  - Product use in unapproved indication [Unknown]
  - Asthenia [Not Recovered/Not Resolved]
  - Atrial fibrillation [Not Recovered/Not Resolved]
  - Drug ineffective [Unknown]
  - Product substitution issue [Unknown]
  - Burning sensation [Unknown]
  - Off label use [Unknown]
  - Sleep apnoea syndrome [Unknown]
  - Eructation [Recovered/Resolved]
  - Vision blurred [Recovered/Resolved]
  - Weight increased [Recovered/Resolved]
  - Cataract [Unknown]
  - Paraesthesia [Unknown]

NARRATIVE: CASE EVENT DATE: 201503
